FAERS Safety Report 23613281 (Version 1)
Quarter: 2024Q1

REPORT INFORMATION
  Report Type: Report from Study
  Country: US (occurrence: US)
  Receive Date: 20240308
  Receipt Date: 20240308
  Transmission Date: 20240410
  Serious: Yes (Disabling, Other)
  Sender: FDA-Public Use
  Company Number: US-JAZZ PHARMACEUTICALS-2023-US-020956

PATIENT
  Age: 25 Year
  Sex: Female

DRUGS (8)
  1. XYWAV [Suspect]
     Active Substance: CALCIUM OXYBATE\MAGNESIUM OXYBATE\POTASSIUM OXYBATE\SODIUM OXYBATE
     Indication: Hypersomnia
     Dosage: 2.25 GRAM, BID
     Route: 048
     Dates: start: 20230922
  2. XYWAV [Suspect]
     Active Substance: CALCIUM OXYBATE\MAGNESIUM OXYBATE\POTASSIUM OXYBATE\SODIUM OXYBATE
     Dosage: 2.25 GRAM, QD
     Route: 048
  3. ARMODAFINIL [Concomitant]
     Active Substance: ARMODAFINIL
     Dosage: UNK, 200MG
     Dates: start: 20211201
  4. ARMODAFINIL [Concomitant]
     Active Substance: ARMODAFINIL
     Dosage: UNK, 250MG
     Dates: start: 20211201
  5. OMEPRAZOLE [Concomitant]
     Active Substance: OMEPRAZOLE
     Dosage: UNK
     Dates: start: 20230301
  6. VALACYCLOVIR HYDROCHLORIDE [Concomitant]
     Active Substance: VALACYCLOVIR HYDROCHLORIDE
     Dosage: UNK
     Dates: start: 20211201
  7. TYLENOL [Concomitant]
     Active Substance: ACETAMINOPHEN
     Indication: Oral herpes
     Dosage: UNK
     Dates: start: 20231024
  8. IBUPROFEN [Concomitant]
     Active Substance: IBUPROFEN
     Indication: Oral herpes
     Dosage: UNK
     Dates: start: 20231024

REACTIONS (5)
  - Pneumonia [Unknown]
  - Illness [Unknown]
  - Confusional state [Unknown]
  - Somnolence [Unknown]
  - Product dose omission issue [Unknown]

NARRATIVE: CASE EVENT DATE: 20231024
